FAERS Safety Report 9902506 (Version 1)
Quarter: 2014Q1

REPORT INFORMATION
  Report Type: Spontaneous
  Country: FR (occurrence: FR)
  Receive Date: 20140217
  Receipt Date: 20140217
  Transmission Date: 20141002
  Serious: Yes (Death)
  Sender: FDA-Public Use
  Company Number: FR-JNJFOC-20140206963

PATIENT
  Age: 86 Year
  Sex: Male

DRUGS (10)
  1. XARELTO [Suspect]
     Indication: CEREBROVASCULAR ACCIDENT PROPHYLAXIS
     Route: 048
     Dates: end: 20131104
  2. XARELTO [Suspect]
     Indication: ATRIAL FIBRILLATION
     Route: 048
     Dates: end: 20131104
  3. KARDEGIC [Suspect]
     Indication: PRODUCT USED FOR UNKNOWN INDICATION
     Route: 048
     Dates: end: 20131104
  4. SERC [Concomitant]
     Route: 065
  5. TANAKAN [Concomitant]
     Route: 065
  6. CRESTOR [Concomitant]
     Route: 065
  7. DIAMICRON [Concomitant]
     Route: 065
  8. APROVEL [Concomitant]
     Route: 065
  9. JANUVIA [Concomitant]
     Route: 065
  10. METFORMINE [Concomitant]
     Route: 065

REACTIONS (3)
  - Cerebral haemorrhage [Fatal]
  - Aphasia [Fatal]
  - Hemiplegia [Fatal]
